FAERS Safety Report 10469186 (Version 1)
Quarter: 2014Q3

REPORT INFORMATION
  Report Type: Spontaneous
  Country: CA (occurrence: None)
  Receive Date: 20140919
  Receipt Date: 20140919
  Transmission Date: 20150326
  Serious: Yes (Hospitalization)
  Sender: FDA-Public Use
  Company Number: CA-013992

PATIENT
  Age: 79 Year
  Sex: Male

DRUGS (9)
  1. METOPROLOL [Concomitant]
     Active Substance: METOPROLOL
  2. FENTANYL. [Concomitant]
     Active Substance: FENTANYL
  3. ZYTIGA [Concomitant]
     Active Substance: ABIRATERONE ACETATE
  4. CALCIUM [Concomitant]
     Active Substance: CALCIUM
  5. PREDNISONE. [Concomitant]
     Active Substance: PREDNISONE
  6. GABAPENTIN. [Concomitant]
     Active Substance: GABAPENTIN
  7. FIRMAGON [Suspect]
     Active Substance: DEGARELIX ACETATE
     Indication: PROSTATE CANCER
     Route: 058
     Dates: start: 20130412, end: 20140810
  8. TROSEC [Concomitant]
  9. LACTULOSE. [Concomitant]
     Active Substance: LACTULOSE

REACTIONS (6)
  - Contusion [None]
  - Flank pain [None]
  - Constipation [None]
  - Nausea [None]
  - Decreased appetite [None]
  - Prostatic specific antigen increased [None]

NARRATIVE: CASE EVENT DATE: 20131030
